FAERS Safety Report 24242603 (Version 1)
Quarter: 2024Q3

REPORT INFORMATION
  Report Type: Spontaneous
  Country: US (occurrence: None)
  Receive Date: 20240822
  Receipt Date: 20240822
  Transmission Date: 20241016
  Serious: No
  Sender: Public
  Company Number: None

PATIENT
  Age: 26 Year
  Sex: Female
  Weight: 110 kg

DRUGS (1)
  1. OCREVUS [Suspect]
     Active Substance: OCRELIZUMAB
     Indication: Relapsing-remitting multiple sclerosis

REACTIONS (5)
  - Infusion related reaction [None]
  - Ear pruritus [None]
  - Rash pruritic [None]
  - Erythema [None]
  - Rash [None]

NARRATIVE: CASE EVENT DATE: 20240813
